FAERS Safety Report 9302607 (Version 4)
Quarter: 2013Q3

REPORT INFORMATION
  Report Type: Spontaneous
  Country: FR (occurrence: None)
  Receive Date: 20130612
  Receipt Date: 20130802
  Transmission Date: 20140515
  Serious: Yes (Life-Threatening, Hospitalization, Other)
  Sender: FDA-Public Use
  Company Number: 2013FR0172

PATIENT
  Age: 27 Year
  Sex: Female

DRUGS (9)
  1. KINERET [Suspect]
     Indication: JUVENILE IDIOPATHIC ARTHRITIS
     Dates: start: 201211, end: 20130304
  2. CELEBREX [Suspect]
     Indication: JUVENILE IDIOPATHIC ARTHRITIS
     Route: 048
     Dates: start: 20130219
  3. PLAQUENIL [Suspect]
     Indication: JUVENILE IDIOPATHIC ARTHRITIS
     Route: 048
     Dates: start: 20130219, end: 20130304
  4. INEXIUM (ESOMEPRAZOLE MAGNESIUM) (ESOMEPRAZOLE MAGNESIUM) [Suspect]
     Route: 048
     Dates: start: 20130219, end: 20130304
  5. TERCIAN [Suspect]
     Route: 048
     Dates: start: 20130219, end: 20130304
  6. OROCAL D3 (LEKOVIT CA (COLECALCIFEROL, CALCIUM CARBONATE) [Concomitant]
  7. LYSANXIA (PRAZEPAM) (PRAZEPAM) [Concomitant]
  8. PARACETAMOL (PARACETAMOL) (PARACETAMOL) [Concomitant]
  9. CORTANCYL (PREDNISONE) (PREDNISONE) [Concomitant]

REACTIONS (7)
  - Leukopenia [None]
  - Agranulocytosis [None]
  - Dermo-hypodermitis [None]
  - Pyrexia [None]
  - Histiocytosis haematophagic [None]
  - Chills [None]
  - Hyperhidrosis [None]
